FAERS Safety Report 8128951-5 (Version None)
Quarter: 2012Q1

REPORT INFORMATION
  Report Type: 
  Country: None (occurrence: None)
  Receive Date: 20120210
  Receipt Date: 20110620
  Transmission Date: 20120608
  Serious: No
  Sender: FDA-Public Use
  Company Number: US-BRISTOL-MYERS SQUIBB COMPANY-15844699

PATIENT
  Age: 87 Year
  Sex: Female
  Weight: 76 kg

DRUGS (2)
  1. VALTREX [Concomitant]
  2. ORENCIA [Suspect]
     Dosage: 4 TO 5 YEARS AGO,RECEIVED INFUSION THREE WEEKS AGO
     Route: 042

REACTIONS (1)
  - RASH ERYTHEMATOUS [None]
